FAERS Safety Report 20419552 (Version 2)
Quarter: 2022Q1

REPORT INFORMATION
  Report Type: Spontaneous
  Country: PT (occurrence: PT)
  Receive Date: 20220203
  Receipt Date: 20220215
  Transmission Date: 20220424
  Serious: Yes (Other)
  Sender: FDA-Public Use
  Company Number: PT-TEVA-2022-PT-2003268

PATIENT
  Age: 37 Year
  Sex: Male

DRUGS (3)
  1. PALIPERIDONE [Suspect]
     Active Substance: PALIPERIDONE
     Indication: Schizophrenia
     Route: 065
  2. PALIPERIDONE [Suspect]
     Active Substance: PALIPERIDONE
     Dosage: SUDDENLY DECREASED
     Route: 065
  3. PROPRANOLOL [Suspect]
     Active Substance: PROPRANOLOL HYDROCHLORIDE
     Indication: Akathisia
     Route: 065

REACTIONS (4)
  - Psychomotor retardation [Unknown]
  - Akathisia [Recovered/Resolved]
  - Drug withdrawal syndrome [Recovered/Resolved]
  - Drug ineffective [Unknown]
